FAERS Safety Report 18562878 (Version 1)
Quarter: 2020Q4

REPORT INFORMATION
  Report Type: Spontaneous
  Country: US (occurrence: US)
  Receive Date: 20201130
  Receipt Date: 20201130
  Transmission Date: 20210114
  Serious: No
  Sender: FDA-Public Use
  Company Number: US-ROCHE-2481458

PATIENT
  Sex: Female

DRUGS (16)
  1. LUCENTIS [Suspect]
     Active Substance: RANIBIZUMAB
     Indication: MACULAR OEDEMA
  2. LINZESS [Concomitant]
     Active Substance: LINACLOTIDE
  3. ONDANSETRON [Concomitant]
     Active Substance: ONDANSETRON
  4. SPIRONOLACTONE. [Concomitant]
     Active Substance: SPIRONOLACTONE
  5. LUCENTIS [Suspect]
     Active Substance: RANIBIZUMAB
     Indication: TYPE 2 DIABETES MELLITUS
     Dosage: PHYSICIAN TO INJECT 0.3 MG INTO BOTH EYES; FOR A YEAR
     Route: 065
  6. ELIQUIS [Concomitant]
     Active Substance: APIXABAN
  7. METFORMIN HCL [Concomitant]
     Active Substance: METFORMIN HYDROCHLORIDE
  8. DIAZEPAM. [Concomitant]
     Active Substance: DIAZEPAM
  9. FUROSEMIDE. [Concomitant]
     Active Substance: FUROSEMIDE
  10. BACLOFEN. [Concomitant]
     Active Substance: BACLOFEN
  11. LUCENTIS [Suspect]
     Active Substance: RANIBIZUMAB
     Indication: DIABETIC RETINOPATHY
  12. ALPRAZOLAM. [Concomitant]
     Active Substance: ALPRAZOLAM
  13. CARVEDILOL. [Concomitant]
     Active Substance: CARVEDILOL
  14. DIGOX [Concomitant]
     Active Substance: DIGOXIN
  15. VENTOLIN HFA [Concomitant]
     Active Substance: ALBUTEROL SULFATE
  16. VICTOZA [Concomitant]
     Active Substance: LIRAGLUTIDE

REACTIONS (2)
  - Injection site pain [Not Recovered/Not Resolved]
  - Visual impairment [Not Recovered/Not Resolved]
